FAERS Safety Report 8157611-X (Version None)
Quarter: 2012Q1

REPORT INFORMATION
  Report Type: 
  Country: None (occurrence: None)
  Receive Date: 20120222
  Receipt Date: 20110708
  Transmission Date: 20120608
  Serious: No
  Sender: FDA-Public Use
  Company Number: US-ASTRAZENECA-2011SE40946

PATIENT
  Sex: Female

DRUGS (3)
  1. TENORMIN [Suspect]
     Route: 048
     Dates: start: 20090101, end: 20110601
  2. TENORMIN [Suspect]
     Route: 048
     Dates: start: 20110701, end: 20110701
  3. TENORMIN [Suspect]
     Indication: HYPERTENSION
     Route: 048
     Dates: start: 19920101, end: 20090101

REACTIONS (1)
  - ABDOMINAL DISCOMFORT [None]
